FAERS Safety Report 21090542 (Version 1)
Quarter: 2022Q3

REPORT INFORMATION
  Report Type: Spontaneous
  Country: TR (occurrence: TR)
  Receive Date: 20220715
  Receipt Date: 20220715
  Transmission Date: 20221027
  Serious: Yes (Other)
  Sender: FDA-Public Use
  Company Number: TR-BRISTOL-MYERS SQUIBB COMPANY-2022-074863

PATIENT
  Age: 50 Year
  Sex: Male

DRUGS (5)
  1. NIVOLUMAB [Suspect]
     Active Substance: NIVOLUMAB
     Indication: Malignant melanoma
     Route: 065
     Dates: start: 202004
  2. NIVOLUMAB [Suspect]
     Active Substance: NIVOLUMAB
     Route: 065
  3. IPILIMUMAB [Suspect]
     Active Substance: IPILIMUMAB
     Indication: Malignant melanoma
     Route: 065
     Dates: start: 202004
  4. DABRAFENIB [Concomitant]
     Active Substance: DABRAFENIB
     Indication: Malignant melanoma
  5. TRAMETINIB [Concomitant]
     Active Substance: TRAMETINIB
     Indication: Malignant melanoma

REACTIONS (1)
  - Granulomatous lymphadenitis [Unknown]
